FAERS Safety Report 15160846 (Version 1)
Quarter: 2018Q3

REPORT INFORMATION
  Report Type: Spontaneous
  Country: US (occurrence: US)
  Receive Date: 20180718
  Receipt Date: 20180718
  Transmission Date: 20181010
  Serious: No
  Sender: FDA-Public Use
  Company Number: US-009507513-1412USA006211

PATIENT
  Age: 29 Year
  Sex: Female

DRUGS (6)
  1. TENOFOVIR DISOPROXIL FUMARATE. [Suspect]
     Active Substance: TENOFOVIR DISOPROXIL FUMARATE
     Dosage: 300 (UNIT KNOWN),DAILY
     Route: 048
  2. DARUNAVIR [Suspect]
     Active Substance: DARUNAVIR
     Dosage: 1200(UNIT UNKNOWN) DAILY
     Route: 048
  3. LAMIVUDINE AND ZIDOVUDINE [Suspect]
     Active Substance: LAMIVUDINE\ZIDOVUDINE
     Dosage: 2 (UNIT UNKNOWN), DAILY, ONGOING AT DELIVERY
     Route: 048
  4. ISENTRESS [Suspect]
     Active Substance: RALTEGRAVIR POTASSIUM
     Dosage: 800 (UNIT UNKNOWN) DAILY
     Route: 048
  5. LOPINAVIR (+) RITONAVIR [Suspect]
     Active Substance: LOPINAVIR\RITONAVIR
     Dosage: 2 (UNIT KNOWN), DIALY,ONING AT DELIVERY
     Route: 048
  6. RITONAVIR. [Suspect]
     Active Substance: RITONAVIR
     Dosage: 200(UNIT UNKNOWN) DAILY
     Route: 048

REACTIONS (1)
  - Maternal exposure during pregnancy [Recovered/Resolved]
